FAERS Safety Report 7674020-8 (Version None)
Quarter: 2011Q3

REPORT INFORMATION
  Report Type: 
  Country: None (occurrence: None)
  Receive Date: 20110810
  Receipt Date: 20110803
  Transmission Date: 20111222
  Serious: Yes (Disabling, Other)
  Sender: FDA-Public Use
  Company Number: US-BRISTOL-MYERS SQUIBB COMPANY-15944895

PATIENT
  Age: 48 Year
  Sex: Male
  Weight: 87 kg

DRUGS (17)
  1. METFORMIN HCL [Suspect]
     Indication: TYPE 2 DIABETES MELLITUS
     Dosage: INTIAL STRTD ON UNK DOSE
  2. IBUPROFEN [Concomitant]
     Indication: INFLAMMATION
     Route: 048
  3. SIMVASTATIN [Concomitant]
     Indication: BLOOD CHOLESTEROL INCREASED
  4. AMITRIPTYLINE HCL [Concomitant]
  5. CIALIS [Concomitant]
  6. LITHIUM CARBONATE [Concomitant]
  7. ZOLPIDEM TARTRATE [Concomitant]
     Indication: SLEEP DISORDER
  8. AVANDIA [Suspect]
     Indication: TYPE 2 DIABETES MELLITUS
     Route: 048
  9. IBUPROFEN [Concomitant]
     Indication: BACK PAIN
     Route: 048
  10. LIPITOR [Suspect]
     Indication: BLOOD CHOLESTEROL INCREASED
     Dosage: FILM COATED TABS STRT UNK FREQ ALTRD TO 10 MG DAILY
     Route: 048
  11. VIAGRA [Suspect]
     Dosage: FILM COATED TABS
  12. OXYCODONE HCL [Suspect]
     Route: 048
  13. CLONAZEPAM [Concomitant]
  14. SOMA [Concomitant]
  15. LANTUS [Suspect]
     Indication: TYPE 2 DIABETES MELLITUS
     Dosage: DAILY IN AFTERNOON
  16. GLIMEPIRIDE [Suspect]
     Indication: TYPE 2 DIABETES MELLITUS
     Route: 048
  17. TRAZODONE HCL [Concomitant]
     Indication: SLEEP DISORDER

REACTIONS (7)
  - HYPERTENSION [None]
  - LOSS OF CONSCIOUSNESS [None]
  - BLOOD GLUCOSE DECREASED [None]
  - NEUROPATHY PERIPHERAL [None]
  - LOCALISED INFECTION [None]
  - MOVEMENT DISORDER [None]
  - BLOOD GLUCOSE INCREASED [None]
